FAERS Safety Report 8004947-9 (Version None)
Quarter: 2011Q4

REPORT INFORMATION
  Report Type: 
  Country: None (occurrence: None)
  Receive Date: 20111223
  Receipt Date: 20111215
  Transmission Date: 20120403
  Serious: Yes (Other)
  Sender: FDA-Public Use
  Company Number: AT-JNJFOC-20111207559

PATIENT
  Sex: Female

DRUGS (2)
  1. XARELTO [Suspect]
     Indication: KNEE OPERATION
     Route: 048
  2. LOVENOX [Concomitant]
     Indication: KNEE OPERATION

REACTIONS (1)
  - VENOUS THROMBOSIS [None]
